FAERS Safety Report 22001082 (Version 1)
Quarter: 2023Q1

REPORT INFORMATION
  Report Type: Spontaneous
  Country: US (occurrence: US)
  Receive Date: 20230216
  Receipt Date: 20230216
  Transmission Date: 20230418
  Serious: No
  Sender: FDA-Public Use
  Company Number: US-PFIZER INC-PV202300029629

PATIENT
  Age: 29 Year
  Sex: Male

DRUGS (9)
  1. SOLU-MEDROL [Suspect]
     Active Substance: METHYLPREDNISOLONE SODIUM SUCCINATE
     Dosage: 1000 MG DOSES OF SOLUMEDROL INTRAVENOUS INFUSIONS
     Route: 042
     Dates: start: 20230110, end: 20230112
  2. OCREVUS [Concomitant]
     Active Substance: OCRELIZUMAB
  3. DULOXETINE [Concomitant]
     Active Substance: DULOXETINE
  4. CYCLOBENZAPRINE [Concomitant]
     Active Substance: CYCLOBENZAPRINE
  5. VALIUM [Concomitant]
     Active Substance: DIAZEPAM
  6. BENADRYL [Concomitant]
     Active Substance: DIPHENHYDRAMINE HYDROCHLORIDE
  7. TYLENOL [Concomitant]
     Active Substance: ACETAMINOPHEN
  8. COVID-19 VACCINE [Concomitant]
  9. PREVNAR [Concomitant]
     Active Substance: PNEUMOCOCCAL 7-VALENT CONJUGATE VACCINE (DIPHTHERIA CRM197 PROTEIN)

REACTIONS (1)
  - Weight abnormal [Unknown]
